FAERS Safety Report 10694864 (Version 2)
Quarter: 2015Q1

REPORT INFORMATION
  Report Type: Spontaneous
  Country: US (occurrence: None)
  Receive Date: 20150105
  Receipt Date: 20150120
  Transmission Date: 20150721
  Serious: Yes (Hospitalization, Other)
  Sender: FDA-Public Use
  Company Number: AXC-2014-000793

PATIENT
  Age: 43 Year
  Sex: Female

DRUGS (10)
  1. INSULIN [Concomitant]
     Active Substance: INSULIN NOS
  2. RANITIDINE [Concomitant]
     Active Substance: RANITIDINE\RANITIDINE HYDROCHLORIDE
  3. ALUMINUM HYDROXIDE GEL [Suspect]
     Active Substance: ALGELDRATE
     Indication: GASTRITIS
  4. ALUMINUM HYDROXIDE. [Suspect]
     Active Substance: ALUMINUM HYDROXIDE
     Indication: BLOOD PHOSPHORUS ABNORMAL
  5. CALCIUM CARBONATE. [Concomitant]
     Active Substance: CALCIUM CARBONATE
  6. ASPIRIN. [Concomitant]
     Active Substance: ASPIRIN
  7. SUCRALFATE. [Suspect]
     Active Substance: SUCRALFATE
     Indication: GASTRITIS
     Route: 048
  8. DIANEAL [Concomitant]
     Active Substance: CALCIUM CHLORIDE\DEXTROSE\MAGNESIUM CHLORIDE\SODIUM CHLORIDE\SODIUM LACTATE
  9. DEFEROXAMINE [Concomitant]
     Active Substance: DEFEROXAMINE\DEFEROXAMINE MESYLATE
  10. CAPTOPRIL. [Concomitant]
     Active Substance: CAPTOPRIL

REACTIONS (28)
  - Metal poisoning [None]
  - Confusional state [None]
  - Haemoglobin decreased [None]
  - Mean cell volume decreased [None]
  - Vomiting [None]
  - Metabolic encephalopathy [None]
  - Dysarthria [None]
  - Haematocrit decreased [None]
  - Mental status changes [None]
  - Dyspnoea [None]
  - Peritonitis bacterial [None]
  - Blood creatinine increased [None]
  - Microcytic anaemia [None]
  - Asterixis [None]
  - Cerebral infarction [None]
  - Off label use [None]
  - Protein total increased [None]
  - Toxicity to various agents [None]
  - Humerus fracture [None]
  - Blood pressure systolic decreased [None]
  - Nausea [None]
  - Iron deficiency [None]
  - Palpitations [None]
  - Blood glucose increased [None]
  - Fall [None]
  - Klebsiella infection [None]
  - Blood urea increased [None]
  - Blood alkaline phosphatase increased [None]
